FAERS Safety Report 5414935-4 (Version None)
Quarter: 2007Q3

REPORT INFORMATION
  Report Type: 
  Country: None (occurrence: None)
  Receive Date: 20070813
  Receipt Date: 20070813
  Transmission Date: 20080115
  Serious: Yes (Other)
  Sender: FDA-Public Use
  Company Number: None

PATIENT
  Age: 49 Year
  Sex: Female
  Weight: 90.7194 kg

DRUGS (1)
  1. AMANTADINE HCL [Suspect]
     Indication: CHRONIC FATIGUE SYNDROME
     Dosage: 100 MG 2 X MOUTH
     Route: 048
     Dates: start: 20070501, end: 20070701

REACTIONS (5)
  - DIZZINESS [None]
  - DRUG INEFFECTIVE [None]
  - FATIGUE [None]
  - GAIT DISTURBANCE [None]
  - NAUSEA [None]
